FAERS Safety Report 24782143 (Version 1)
Quarter: 2024Q4

REPORT INFORMATION
  Report Type: Spontaneous
  Country: US (occurrence: US)
  Receive Date: 20241227
  Receipt Date: 20241227
  Transmission Date: 20250114
  Serious: No
  Sender: SUNOVION
  Company Number: US-SUMITOMO PHARMA SWITZERLAND GMBH-2024SPA006034

PATIENT

DRUGS (1)
  1. GEMTESA [Suspect]
     Active Substance: VIBEGRON
     Route: 048

REACTIONS (5)
  - Dysuria [Unknown]
  - Micturition urgency [Unknown]
  - Bladder spasm [Unknown]
  - Urinary incontinence [Unknown]
  - Therapy interrupted [Unknown]
